FAERS Safety Report 15869055 (Version 2)
Quarter: 2019Q1

REPORT INFORMATION
  Report Type: Spontaneous
  Country: JP (occurrence: JP)
  Receive Date: 20190125
  Receipt Date: 20190204
  Transmission Date: 20190417
  Serious: Yes (Other)
  Sender: FDA-Public Use
  Company Number: JP-PFIZER INC-2019026391

PATIENT
  Age: 8 Decade

DRUGS (3)
  1. CORTRIL [Suspect]
     Active Substance: HYDROCORTISONE
     Dosage: 25 MG, UNK
     Route: 048
  2. CORTRIL [Suspect]
     Active Substance: HYDROCORTISONE
     Indication: HYPOPITUITARISM
     Dosage: 15 MG, UNK
     Route: 048
  3. CORTRIL [Suspect]
     Active Substance: HYDROCORTISONE
     Dosage: 30 MG, UNK
     Route: 048

REACTIONS (2)
  - Adrenal insufficiency [Unknown]
  - Blood sodium decreased [Unknown]
